FAERS Safety Report 6584611-3 (Version None)
Quarter: 2010Q1

REPORT INFORMATION
  Report Type: 
  Country: None (occurrence: None)
  Receive Date: 20100213
  Receipt Date: 20100213
  Transmission Date: 20100710
  Serious: No
  Sender: FDA-Public Use
  Company Number: None

PATIENT
  Sex: Female
  Weight: 64.4108 kg

DRUGS (1)
  1. TRETINOIN [Suspect]
     Indication: ACNE
     Dosage: 0.05% QHS APPLY TO FACE

REACTIONS (2)
  - RASH ERYTHEMATOUS [None]
  - TREATMENT FAILURE [None]
